FAERS Safety Report 17075134 (Version 1)
Quarter: 2019Q4

REPORT INFORMATION
  Report Type: Spontaneous
  Country: FR (occurrence: FR)
  Receive Date: 20191126
  Receipt Date: 20191126
  Transmission Date: 20200122
  Serious: Yes (Hospitalization)
  Sender: FDA-Public Use
  Company Number: FR-009507513-1911FRA007318

PATIENT
  Age: 72 Year
  Sex: Male
  Weight: 86 kg

DRUGS (13)
  1. ZERBAXA [Suspect]
     Active Substance: CEFTOLOZANE SULFATE\TAZOBACTAM SODIUM
     Indication: OSTEITIS
     Dosage: CEFTALOZANE 250MG/J / TAZOBACTAM 125 MG/J
     Route: 042
     Dates: start: 20190819, end: 20191003
  2. COUMADINE [Interacting]
     Active Substance: WARFARIN SODIUM
     Indication: ATRIAL FIBRILLATION
     Dosage: 2 MILLIGRAM, QD
     Route: 048
     Dates: start: 20190913
  3. GALVUS [Concomitant]
     Active Substance: VILDAGLIPTIN
  4. LINEZOLID. [Interacting]
     Active Substance: LINEZOLID
     Indication: OSTEITIS
     Dosage: 600 MILLIGRAM, QD
     Route: 048
     Dates: start: 20190819, end: 20191003
  5. VERATRAN [Concomitant]
     Active Substance: CLOTIAZEPAM
  6. AMLODIPINE [Concomitant]
     Active Substance: AMLODIPINE BESYLATE
  7. POLYETHYLENE GLYCOL 4000 [Concomitant]
     Active Substance: POLYETHYLENE GLYCOL 4000
  8. LASILIX [Concomitant]
     Active Substance: FUROSEMIDE
  9. LEVEMIR [Concomitant]
     Active Substance: INSULIN DETEMIR
  10. PREGABALIN. [Concomitant]
     Active Substance: PREGABALIN
  11. NEBIVOLOL. [Concomitant]
     Active Substance: NEBIVOLOL
  12. CLOPIDOGREL [Interacting]
     Active Substance: CLOPIDOGREL BISULFATE
     Indication: THROMBOSIS PROPHYLAXIS
     Dosage: 75 MILLIGRAM, QD
     Route: 048
  13. TAMSULOSIN HYDROCHLORIDE. [Concomitant]
     Active Substance: TAMSULOSIN HYDROCHLORIDE

REACTIONS (2)
  - Shock haemorrhagic [Recovered/Resolved]
  - Gastrointestinal haemorrhage [Recovered/Resolved]

NARRATIVE: CASE EVENT DATE: 20191002
